FAERS Safety Report 24802698 (Version 1)
Quarter: 2025Q1

REPORT INFORMATION
  Report Type: Spontaneous
  Country: FR (occurrence: FR)
  Receive Date: 20250103
  Receipt Date: 20250103
  Transmission Date: 20250409
  Serious: Yes (Hospitalization, Congenital Anomaly, Other)
  Sender: AUROBINDO
  Company Number: FR-AFSSAPS-MP2024001740

PATIENT
  Sex: Female
  Weight: 2.3 kg

DRUGS (5)
  1. TRAMADOL [Suspect]
     Active Substance: TRAMADOL
     Indication: Dependence
     Dosage: 20 DOSAGE FORM, ONCE A DAY (TABLETS TRAMADOL LP 100/DAY ON AVERAGE)
     Route: 064
     Dates: start: 20240219, end: 20241031
  2. VENLAFAXINE HYDROCHLORIDE [Concomitant]
     Active Substance: VENLAFAXINE HYDROCHLORIDE
     Indication: Depression
     Route: 064
     Dates: start: 20240219, end: 202409
  3. OLANZAPINE [Concomitant]
     Active Substance: OLANZAPINE
     Indication: Depression
     Dosage: 7.5 MILLIGRAM, 3 TIMES A DAY
     Route: 064
     Dates: start: 20240219, end: 202409
  4. QUETIAPINE FUMARATE [Concomitant]
     Active Substance: QUETIAPINE FUMARATE
     Indication: Depression
     Route: 064
     Dates: start: 202409, end: 20241031
  5. LORAZEPAM [Concomitant]
     Active Substance: LORAZEPAM
     Indication: Mixed anxiety and depressive disorder
     Route: 064
     Dates: start: 20240219, end: 20241031

REACTIONS (5)
  - Neonatal respiratory distress [Recovered/Resolved]
  - Microcephaly [Not Recovered/Not Resolved]
  - Pelvic kidney [Not Recovered/Not Resolved]
  - Drug withdrawal syndrome neonatal [Recovered/Resolved]
  - Small for dates baby [Not Recovered/Not Resolved]

NARRATIVE: CASE EVENT DATE: 20241031
